FAERS Safety Report 16606819 (Version 1)
Quarter: 2019Q3

REPORT INFORMATION
  Report Type: Spontaneous
  Country: US (occurrence: US)
  Receive Date: 20190722
  Receipt Date: 20190722
  Transmission Date: 20191004
  Serious: No
  Sender: FDA-Public Use
  Company Number: US-ASTRAZENECA-2019SE99881

PATIENT
  Age: 69 Year
  Sex: Female
  Weight: 68.9 kg

DRUGS (4)
  1. IBRANCE [Suspect]
     Active Substance: PALBOCICLIB
     Indication: BREAST CANCER METASTATIC
     Dosage: 100MG FOR THREE WEEKS AND ONE WEEK BREAK
     Route: 030
     Dates: start: 20180821
  2. OMEPRAZOLE. [Suspect]
     Active Substance: OMEPRAZOLE
     Dosage: OMEPRAZOLE DR 20MG CAPSULE
     Route: 048
  3. GABAPENTIN. [Concomitant]
     Active Substance: GABAPENTIN
     Dosage: 100 MG ONE EVERY DAY, BUT SOMETIME SHE MAY TAKE ONE IN THE MORNING AND ONE AT NIGHT
     Route: 048
  4. MIRALAX [Concomitant]
     Active Substance: POLYETHYLENE GLYCOL 3350
     Dosage: NOT TAKE IT REGULARLY. SHE MAY TAKE IT EVERY ONE OR TWO DAYS, BUT NOT EVERY DAY
     Route: 065

REACTIONS (5)
  - Hyperhidrosis [Not Recovered/Not Resolved]
  - Constipation [Unknown]
  - Pain of skin [Not Recovered/Not Resolved]
  - Haematochezia [Unknown]
  - Feeling hot [Not Recovered/Not Resolved]
